FAERS Safety Report 15699985 (Version 3)
Quarter: 2020Q1

REPORT INFORMATION
  Report Type: Spontaneous
  Country: US (occurrence: US)
  Receive Date: 20181207
  Receipt Date: 20200218
  Transmission Date: 20200409
  Serious: No
  Sender: FDA-Public Use
  Company Number: US-PFIZER INC-2017403220

PATIENT
  Age: 51 Year
  Sex: Female
  Weight: 68.95 kg

DRUGS (3)
  1. GENOTROPIN [Suspect]
     Active Substance: SOMATROPIN
     Indication: GROWTH HORMONE DEFICIENCY
     Dosage: 4 UNITS INJECTION ONCE A DAY
  2. GENOTROPIN [Suspect]
     Active Substance: SOMATROPIN
     Indication: SEIZURE
     Dosage: UNK
  3. GENOTROPIN [Suspect]
     Active Substance: SOMATROPIN
     Dosage: 0.4 MG, DAILY (7DAYS/WK)
     Dates: start: 20130330

REACTIONS (10)
  - Platelet count decreased [Unknown]
  - Mean platelet volume increased [Unknown]
  - Blood chloride increased [Unknown]
  - Protein total decreased [Unknown]
  - Blood albumin decreased [Unknown]
  - Product dose omission [Unknown]
  - White blood cell count decreased [Unknown]
  - Red cell distribution width increased [Unknown]
  - Arthralgia [Unknown]
  - Device issue [Unknown]

NARRATIVE: CASE EVENT DATE: 20180403
